FAERS Safety Report 6565944-3 (Version None)
Quarter: 2010Q1

REPORT INFORMATION
  Report Type: 
  Country: None (occurrence: None)
  Receive Date: 20100129
  Receipt Date: 20100129
  Transmission Date: 20100710
  Serious: Yes (Hospitalization)
  Sender: FDA-Public Use
  Company Number: None

PATIENT
  Age: 56 Year
  Sex: Male
  Weight: 113.8 kg

DRUGS (1)
  1. CHANTIX [Suspect]
     Indication: SMOKING CESSATION THERAPY
     Dosage: 1 MG EVERY 12 HOURS PO
     Route: 048
     Dates: start: 20100113, end: 20100124

REACTIONS (6)
  - ABNORMAL DREAMS [None]
  - APHASIA [None]
  - CONDITION AGGRAVATED [None]
  - CONVULSION [None]
  - DYSARTHRIA [None]
  - HALLUCINATION, VISUAL [None]
